FAERS Safety Report 13670554 (Version 1)
Quarter: 2017Q2

REPORT INFORMATION
  Report Type: Spontaneous
  Country: US (occurrence: US)
  Receive Date: 20170620
  Receipt Date: 20170620
  Transmission Date: 20170830
  Serious: Yes (Other)
  Sender: FDA-Public Use
  Company Number: US-SA-2017SA107710

PATIENT
  Age: 58 Year
  Sex: Female

DRUGS (2)
  1. ADVIL [Concomitant]
     Active Substance: IBUPROFEN
     Route: 065
  2. ALLEGRA [Suspect]
     Active Substance: FEXOFENADINE HYDROCHLORIDE
     Dosage: POST-NASAL DRIP
     Route: 048

REACTIONS (4)
  - Non-Hodgkin^s lymphoma [Recovered/Resolved]
  - Dyspnoea [Unknown]
  - Mesothelioma [Unknown]
  - Off label use [Unknown]

NARRATIVE: CASE EVENT DATE: 200811
